FAERS Safety Report 7391178-9 (Version None)
Quarter: 2011Q2

REPORT INFORMATION
  Report Type: 
  Country: None (occurrence: None)
  Receive Date: 20110404
  Receipt Date: 20100611
  Transmission Date: 20111010
  Serious: Yes (Other)
  Sender: FDA-Public Use
  Company Number: US-PFIZER INC-2010073818

PATIENT
  Sex: Female
  Weight: 86.168 kg

DRUGS (1)
  1. ZOLOFT [Suspect]
     Dosage: UNK

REACTIONS (4)
  - TREMOR [None]
  - SUICIDAL IDEATION [None]
  - DEPRESSION [None]
  - HYPERTENSION [None]
